FAERS Safety Report 5165793-7 (Version None)
Quarter: 2006Q4

REPORT INFORMATION
  Report Type: 
  Country: None (occurrence: None)
  Receive Date: 20061128
  Receipt Date: 20061117
  Transmission Date: 20070319
  Serious: Yes (Other)
  Sender: FDA-Public Use
  Company Number: 2006142973

PATIENT
  Age: 44 Year
  Sex: Female
  Weight: 47.1741 kg

DRUGS (4)
  1. XANAX [Suspect]
     Indication: ANXIETY
     Dosage: AS NEEDED
     Dates: start: 20061013
  2. XANAX [Suspect]
     Indication: DEPRESSION
     Dosage: AS NEEDED
     Dates: start: 20061013
  3. ZOLOFT [Suspect]
     Indication: ANXIETY
     Dosage: 25 MG (25 MG, 1 IN 1 D)
     Dates: start: 20061020
  4. ZOLOFT [Suspect]
     Indication: DEPRESSION
     Dosage: 25 MG (25 MG, 1 IN 1 D)
     Dates: start: 20061020

REACTIONS (7)
  - ABDOMINAL PAIN [None]
  - DECREASED APPETITE [None]
  - FAECES DISCOLOURED [None]
  - HEPATIC PAIN [None]
  - SLEEP DISORDER [None]
  - STEATORRHOEA [None]
  - VISION BLURRED [None]
